FAERS Safety Report 9678349 (Version 3)
Quarter: 2014Q2

REPORT INFORMATION
  Report Type: Spontaneous
  Country: CA (occurrence: CA)
  Receive Date: 20131108
  Receipt Date: 20140410
  Transmission Date: 20141212
  Serious: Yes (Hospitalization)
  Sender: FDA-Public Use
  Company Number: CA-ROCHE-1300926

PATIENT
  Age: 59 Year
  Sex: Female

DRUGS (6)
  1. XOLAIR [Suspect]
     Indication: ASTHMA
     Route: 058
     Dates: start: 20131021
  2. SYMBICORT [Concomitant]
  3. SINGULAIR [Concomitant]
  4. SPIRIVA [Concomitant]
  5. VENTOLINE [Concomitant]
  6. PULMICORT [Concomitant]

REACTIONS (5)
  - Gastrointestinal haemorrhage [Unknown]
  - Anxiety [Unknown]
  - Poor quality sleep [Unknown]
  - Obstructive airways disorder [Unknown]
  - Productive cough [Unknown]
